FAERS Safety Report 4405306-8 (Version None)
Quarter: 2004Q3

REPORT INFORMATION
  Report Type: 
  Country: None (occurrence: None)
  Receive Date: 20040723
  Receipt Date: 20040720
  Transmission Date: 20050211
  Serious: Yes (Death)
  Sender: FDA-Public Use
  Company Number: PHBS2004GB09645

PATIENT
  Age: 51 Year
  Sex: Female

DRUGS (2)
  1. CYCLOSPORINE [Suspect]
     Indication: DERMATITIS ATOPIC
     Dosage: 3 MG/KG/D
     Route: 065
     Dates: start: 19970101
  2. CYCLOSPORINE [Suspect]
     Dosage: 2 MG/KG/D
     Route: 065

REACTIONS (9)
  - ANAEMIA [None]
  - BLOOD LACTATE DEHYDROGENASE INCREASED [None]
  - CACHEXIA [None]
  - LYMPHADENOPATHY [None]
  - MEDIASTINAL MASS [None]
  - NEUTROPENIC SEPSIS [None]
  - NIGHT SWEATS [None]
  - NON-HODGKIN'S LYMPHOMA STAGE III [None]
  - WEIGHT DECREASED [None]
